FAERS Safety Report 26056178 (Version 1)
Quarter: 2025Q4

REPORT INFORMATION
  Report Type: Spontaneous
  Country: EU (occurrence: EU)
  Receive Date: 20251118
  Receipt Date: 20251118
  Transmission Date: 20260118
  Serious: Yes (Life-Threatening, Hospitalization, Other)
  Sender: HIKMA
  Company Number: None

PATIENT
  Age: 64 Year
  Sex: Male

DRUGS (4)
  1. CARMUSTINE [Suspect]
     Active Substance: CARMUSTINE
     Indication: T-cell lymphoma
     Dosage: 1 DOSAGE FORM
     Route: 042
     Dates: start: 20250918, end: 20250918
  2. CYTARABINE [Suspect]
     Active Substance: CYTARABINE
     Indication: T-cell lymphoma
     Dosage: 1 DOSAGE FORM
     Route: 042
     Dates: start: 20250918, end: 20250918
  3. ETOPOSIDE [Suspect]
     Active Substance: ETOPOSIDE
     Indication: T-cell lymphoma
     Dosage: 1 DOSAGE FORM
     Route: 042
     Dates: start: 20250918, end: 20250918
  4. MELPHALAN [Suspect]
     Active Substance: MELPHALAN
     Indication: T-cell lymphoma
     Dosage: 1 DOSAGE FORM
     Route: 042
     Dates: start: 20250918, end: 20250918

REACTIONS (1)
  - Acute respiratory distress syndrome [Not Recovered/Not Resolved]

NARRATIVE: CASE EVENT DATE: 20251012
